FAERS Safety Report 19394360 (Version 1)
Quarter: 2021Q2

REPORT INFORMATION
  Report Type: Report from Study
  Country: IT (occurrence: IT)
  Receive Date: 20210609
  Receipt Date: 20210609
  Transmission Date: 20210717
  Serious: Yes (Disabling)
  Sender: FDA-Public Use
  Company Number: IT-GW PHARMA-201912ITGW4670

PATIENT

DRUGS (4)
  1. DEPAKINE [VALPROATE SODIUM] [Concomitant]
     Active Substance: VALPROATE SODIUM
     Indication: SEVERE MYOCLONIC EPILEPSY OF INFANCY
     Dosage: 1300 MILLIGRAM, QD (500 + 800 MILLIGRAM)
     Route: 065
  2. RIVOTRIL [Concomitant]
     Active Substance: CLONAZEPAM
     Indication: SEVERE MYOCLONIC EPILEPSY OF INFANCY
     Dosage: 2 MILLIGRAM, QD (1 MILLIGRAM X 2)
     Route: 065
  3. EPIDIOLEX [Suspect]
     Active Substance: CANNABIDIOL
     Indication: SEVERE MYOCLONIC EPILEPSY OF INFANCY
     Dosage: 15 MG/KG, 675 MILLIGRAM BID
     Route: 065
     Dates: start: 20190710, end: 20191009
  4. TOPAMAX [Concomitant]
     Active Substance: TOPIRAMATE
     Indication: SEVERE MYOCLONIC EPILEPSY OF INFANCY
     Dosage: 550 MILLIGRAM, QD (200 + 350 MILLIGRAM)
     Route: 065

REACTIONS (2)
  - Diarrhoea [Recovered/Resolved]
  - Somnolence [Not Recovered/Not Resolved]

NARRATIVE: CASE EVENT DATE: 201909
